FAERS Safety Report 6585448-1 (Version None)
Quarter: 2010Q1

REPORT INFORMATION
  Report Type: 
  Country: None (occurrence: None)
  Receive Date: 20100217
  Receipt Date: 20100208
  Transmission Date: 20100710
  Serious: Yes (Hospitalization)
  Sender: FDA-Public Use
  Company Number: B0633977A

PATIENT
  Age: 30 Year
  Sex: Female

DRUGS (2)
  1. ACYCLOVIR [Suspect]
     Route: 042
  2. SIBUTRAMINE [Concomitant]

REACTIONS (6)
  - BLOOD CREATININE INCREASED [None]
  - CONDITION AGGRAVATED [None]
  - CRYSTAL URINE [None]
  - NEPHROPATHY TOXIC [None]
  - RENAL FAILURE ACUTE [None]
  - URINE SODIUM INCREASED [None]
